FAERS Safety Report 16946243 (Version 2)
Quarter: 2020Q1

REPORT INFORMATION
  Report Type: Spontaneous
  Country: US (occurrence: US)
  Receive Date: 20191022
  Receipt Date: 20200106
  Transmission Date: 20200409
  Serious: No
  Sender: FDA-Public Use
  Company Number: US-SA-2019SA288933

PATIENT
  Age: 46 Year
  Sex: Female

DRUGS (1)
  1. DUPIXENT [Suspect]
     Active Substance: DUPILUMAB
     Dosage: 300 MG, OTHER
     Route: 058
     Dates: start: 201906

REACTIONS (5)
  - Visual impairment [Unknown]
  - Blepharitis [Unknown]
  - Pruritus [Unknown]
  - Myalgia [Unknown]
  - Pain in extremity [Unknown]
